FAERS Safety Report 5105610-4 (Version None)
Quarter: 2006Q3

REPORT INFORMATION
  Report Type: 
  Country: None (occurrence: None)
  Receive Date: 20060915
  Receipt Date: 20060830
  Transmission Date: 20061208
  Serious: Yes (Other)
  Sender: FDA-Public Use
  Company Number: JP-AVENTIS-200612712JP

PATIENT
  Age: 48 Year
  Sex: Male

DRUGS (7)
  1. AMARYL [Suspect]
     Route: 048
  2. ACTOS [Concomitant]
  3. AIDEITO [Concomitant]
  4. OLMETEC                                 /GFR/ [Concomitant]
  5. NIFELAT L [Concomitant]
  6. RANITAC [Concomitant]
  7. HALCION [Concomitant]

REACTIONS (2)
  - HYPERTENSION [None]
  - HYPOGLYCAEMIA [None]
